FAERS Safety Report 17823272 (Version 13)
Quarter: 2020Q4

REPORT INFORMATION
  Report Type: Report from Study
  Country: AU (occurrence: AU)
  Receive Date: 20200526
  Receipt Date: 20201104
  Transmission Date: 20210113
  Serious: Yes (Other)
  Sender: FDA-Public Use
  Company Number: AU-BEH-2020116879

PATIENT
  Age: 70 Year
  Sex: Female
  Weight: 78 kg

DRUGS (37)
  1. TARGIN [Concomitant]
     Active Substance: NALOXONE HYDROCHLORIDE\OXYCODONE HYDROCHLORIDE
     Dosage: 4 (20/10)
     Dates: start: 202010
  2. PARACETAMOL [Concomitant]
     Active Substance: ACETAMINOPHEN
     Dosage: 6 X 500 MILLIGRAM
     Route: 065
  3. MERSYNDOL [CODEINE PHOSPHATE;DOXYLAMINE SUCCINATE;PARACETAMOL] [Concomitant]
     Dosage: 4X
     Dates: start: 202010
  4. BERINERT [Suspect]
     Active Substance: HUMAN C1-ESTERASE INHIBITOR
     Indication: PROPHYLAXIS
     Dosage: 3000 INTERNATIONAL UNIT, BIW
     Route: 058
     Dates: start: 20200614, end: 20200617
  5. PANADOL [Concomitant]
     Active Substance: ACETAMINOPHEN
     Dosage: 14-20
  6. TRAMADOL. [Concomitant]
     Active Substance: TRAMADOL
     Dosage: 6X 50 MILLIGRAM
  7. TARGIN [Concomitant]
     Active Substance: NALOXONE HYDROCHLORIDE\OXYCODONE HYDROCHLORIDE
     Dosage: 2X 20/10
     Dates: start: 202008
  8. BERINERT [Suspect]
     Active Substance: HUMAN C1-ESTERASE INHIBITOR
     Indication: HEREDITARY ANGIOEDEMA WITH C1 ESTERASE INHIBITOR DEFICIENCY
     Dosage: 3000 INTERNATIONAL UNIT, BIW
     Route: 058
     Dates: start: 20200319
  9. TARGIN [Concomitant]
     Active Substance: NALOXONE HYDROCHLORIDE\OXYCODONE HYDROCHLORIDE
     Dosage: 4 (10/20)
  10. FIRAZYR [Concomitant]
     Active Substance: ICATIBANT ACETATE
     Dosage: 1 DOSAGE FORM (1 INJECTION)
     Dates: start: 202010
  11. BERINERT [Suspect]
     Active Substance: HUMAN C1-ESTERASE INHIBITOR
     Dosage: 3000 INTERNATIONAL UNIT, BIW (SUNDAY AND WEDNESDAY)
     Route: 058
     Dates: start: 20200823
  12. BERINERT [Suspect]
     Active Substance: HUMAN C1-ESTERASE INHIBITOR
     Dosage: 3000 INTERNATIONAL UNIT, BIW (EVERY THIRD DAY)
     Route: 058
     Dates: start: 202008
  13. DUROLAX [Concomitant]
     Dosage: 4X
     Dates: start: 202010
  14. PANADOL [Concomitant]
     Active Substance: ACETAMINOPHEN
     Indication: ANALGESIC THERAPY
     Dosage: 500 MILLIGRAM X 6
  15. TRAMADOL. [Concomitant]
     Active Substance: TRAMADOL
     Dosage: 4X 50 MILLIGRAM
     Dates: start: 202009
  16. BERINERT [Suspect]
     Active Substance: HUMAN C1-ESTERASE INHIBITOR
     Dosage: 3000 INTERNATIONAL UNIT, BIW (EVERY THIRD DAY)
     Route: 058
     Dates: start: 202009
  17. DUROLAX [Concomitant]
     Dosage: X4
     Route: 065
  18. OXYNORM [Concomitant]
     Active Substance: OXYCODONE HYDROCHLORIDE
     Indication: ANALGESIC THERAPY
     Dosage: 10 MILLIGRAM X 4
  19. TRAMADOL. [Concomitant]
     Active Substance: TRAMADOL
     Dosage: 4 X 20 MILLIGRAM
     Route: 065
  20. TRAMADOL. [Concomitant]
     Active Substance: TRAMADOL
     Dosage: 4 X 20 MILLIGRAM
     Dates: start: 202008
  21. BERINERT [Suspect]
     Active Substance: HUMAN C1-ESTERASE INHIBITOR
     Dosage: 3000 IU, BIW
     Route: 058
     Dates: start: 20200808, end: 20200811
  22. BERINERT [Suspect]
     Active Substance: HUMAN C1-ESTERASE INHIBITOR
     Dosage: 5000 INTERNATIONAL UNIT, SINGLE
     Route: 058
     Dates: start: 202009
  23. BERINERT [Suspect]
     Active Substance: HUMAN C1-ESTERASE INHIBITOR
     Dosage: 5000 INTERNATIONAL UNIT
     Route: 058
     Dates: start: 202009
  24. BERINERT [Suspect]
     Active Substance: HUMAN C1-ESTERASE INHIBITOR
     Dosage: 5000 INTERNATIONAL UNIT, BIW
     Route: 058
  25. BERINERT [Suspect]
     Active Substance: HUMAN C1-ESTERASE INHIBITOR
     Dosage: 5000 INTERNATIONAL UNIT
     Route: 058
     Dates: start: 202010
  26. DUROLAX [Concomitant]
     Dosage: 6X
     Route: 065
     Dates: start: 202008
  27. DUROLAX [Concomitant]
     Dosage: 4X
     Dates: start: 202009
  28. DUROLAX [Concomitant]
     Dosage: 6X
     Dates: start: 202009
  29. TRAMADOL. [Concomitant]
     Active Substance: TRAMADOL
     Dosage: 4 (100MG)
  30. DUROLAX [Concomitant]
     Dosage: 8
  31. PANADOL [Concomitant]
     Active Substance: ACETAMINOPHEN
     Dosage: 10
  32. TARGIN [Concomitant]
     Active Substance: NALOXONE HYDROCHLORIDE\OXYCODONE HYDROCHLORIDE
     Dosage: 2 (5/10)
  33. MERSYNDOL [CODEINE PHOSPHATE;DOXYLAMINE SUCCINATE;PARACETAMOL] [Concomitant]
  34. TRAMADOL. [Concomitant]
     Active Substance: TRAMADOL
     Dosage: 4 X 20 MILLIGRAM
     Dates: start: 202009
  35. TRAMADOL. [Concomitant]
     Active Substance: TRAMADOL
     Dosage: 8 (50MG)
  36. TARGIN [Concomitant]
     Active Substance: NALOXONE HYDROCHLORIDE\OXYCODONE HYDROCHLORIDE
     Dosage: 4 X 20/10UNK
     Route: 065
     Dates: start: 202008
  37. TARGIN [Concomitant]
     Active Substance: NALOXONE HYDROCHLORIDE\OXYCODONE HYDROCHLORIDE
     Dosage: 2X 20/10
     Dates: start: 202009

REACTIONS (25)
  - No adverse event [Unknown]
  - Blood pressure increased [Not Recovered/Not Resolved]
  - Hereditary angioedema [Unknown]
  - Increased tendency to bruise [Unknown]
  - Back pain [Recovering/Resolving]
  - Hereditary angioedema [Recovered/Resolved]
  - Hereditary angioedema [Recovered/Resolved]
  - Bedridden [Unknown]
  - Joint injury [Unknown]
  - Pain [Unknown]
  - Hereditary angioedema [Recovered/Resolved]
  - Hereditary angioedema [Not Recovered/Not Resolved]
  - Hereditary angioedema [Not Recovered/Not Resolved]
  - Product supply issue [Not Recovered/Not Resolved]
  - Blood pressure increased [Unknown]
  - Hereditary angioedema [Unknown]
  - Hereditary angioedema [Unknown]
  - Hereditary angioedema [Recovered/Resolved]
  - Hereditary angioedema [Recovered/Resolved]
  - Pain [Recovered/Resolved]
  - Malaise [Unknown]
  - Injection site bruising [Unknown]
  - Hereditary angioedema [Unknown]
  - Device difficult to use [Unknown]
  - Face injury [Unknown]

NARRATIVE: CASE EVENT DATE: 20200429
